FAERS Safety Report 4692040-2 (Version None)
Quarter: 2005Q2

REPORT INFORMATION
  Report Type: 
  Country: None (occurrence: None)
  Receive Date: 20050616
  Receipt Date: 20050616
  Transmission Date: 20051028
  Serious: Yes (Hospitalization)
  Sender: FDA-Public Use
  Company Number: None

PATIENT
  Age: 69 Year
  Sex: Male
  Weight: 136.0791 kg

DRUGS (1)
  1. THEOPHYLLINE [Suspect]
     Indication: CHRONIC OBSTRUCTIVE PULMONARY DISEASE
     Dosage: 300 MG    DAILY    ORAL
     Route: 048
     Dates: start: 20050518, end: 20050609

REACTIONS (10)
  - DECREASED APPETITE [None]
  - DYSPNOEA [None]
  - NAUSEA [None]
  - ORAL INTAKE REDUCED [None]
  - RASH ERYTHEMATOUS [None]
  - RASH MACULAR [None]
  - RASH PRURITIC [None]
  - RASH VESICULAR [None]
  - VISION BLURRED [None]
  - VOMITING [None]
